FAERS Safety Report 23883994 (Version 1)
Quarter: 2024Q2

REPORT INFORMATION
  Report Type: Spontaneous
  Country: JP (occurrence: JP)
  Receive Date: 20240522
  Receipt Date: 20240522
  Transmission Date: 20240716
  Serious: Yes (Death, Hospitalization, Other)
  Sender: FDA-Public Use
  Company Number: JP-NShinyaku-EVA201805569ZZLILLY

PATIENT
  Age: 74 Year
  Sex: Female

DRUGS (30)
  1. TADALAFIL [Suspect]
     Active Substance: TADALAFIL
     Indication: Pulmonary arterial hypertension
  2. UPTRAVI [Concomitant]
     Active Substance: SELEXIPAG
     Indication: Pulmonary arterial hypertension
     Dosage: 0.2 MG
     Dates: start: 20180116, end: 20180129
  3. UPTRAVI [Concomitant]
     Active Substance: SELEXIPAG
     Dosage: 0.2 MG
     Dates: start: 20180130, end: 20180213
  4. UPTRAVI [Concomitant]
     Active Substance: SELEXIPAG
     Dosage: 0.2 MG, TID
     Dates: start: 20180214, end: 20180226
  5. UPTRAVI [Concomitant]
     Active Substance: SELEXIPAG
     Dosage: 0.4 MG
     Dates: start: 20180227, end: 20240408
  6. AUGMENTIN [Concomitant]
     Active Substance: AMOXICILLIN\CLAVULANATE POTASSIUM
     Indication: Lymphoma
     Dosage: UNKNOWN
     Dates: start: 20210204, end: 20210206
  7. AVELOX [Concomitant]
     Active Substance: MOXIFLOXACIN HYDROCHLORIDE
     Indication: Prophylaxis
     Dosage: UNKNOWN
     Dates: start: 20210218, end: 20210220
  8. OPSUMIT [Concomitant]
     Active Substance: MACITENTAN
     Indication: Pulmonary arterial hypertension
  9. PREDNISOLONE ACETATE [Concomitant]
     Active Substance: PREDNISOLONE ACETATE
     Indication: Systemic scleroderma
     Dates: start: 20160726
  10. ELDECALCITOL [Concomitant]
     Active Substance: ELDECALCITOL
     Indication: Osteoporosis
  11. VONOPRAZAN FUMARATE [Concomitant]
     Active Substance: VONOPRAZAN FUMARATE
     Indication: Gastrooesophageal reflux disease
  12. AMBROXOL HYDROCHLORIDE [Concomitant]
     Active Substance: AMBROXOL HYDROCHLORIDE
     Indication: Interstitial lung disease
  13. AMBROXOL HYDROCHLORIDE [Concomitant]
     Active Substance: AMBROXOL HYDROCHLORIDE
     Indication: Bronchitis chronic
  14. ACETYLCYSTEINE [Concomitant]
     Active Substance: ACETYLCYSTEINE
     Indication: Interstitial lung disease
     Dosage: UNKNOWN
  15. ACETYLCYSTEINE [Concomitant]
     Active Substance: ACETYLCYSTEINE
     Indication: Bronchitis chronic
  16. RISEDRONATE SODIUM [Concomitant]
     Active Substance: RISEDRONATE SODIUM
     Indication: Osteoporosis
     Dates: end: 2018
  17. RISEDRONATE SODIUM [Concomitant]
     Active Substance: RISEDRONATE SODIUM
  18. GASMOTIN [LEVOSULPIRIDE] [Concomitant]
     Indication: Chronic gastritis
  19. TOCOPHEROL [Concomitant]
     Active Substance: TOCOPHEROL
     Indication: Hyperlipidaemia
  20. ETODOLAC [Concomitant]
     Active Substance: ETODOLAC
     Indication: Sjogren^s syndrome
  21. REBAMIPIDE [Concomitant]
     Active Substance: REBAMIPIDE
     Indication: Chronic gastritis
  22. NEUROVITAN [CYANOCOBALAMIN;INTRINSIC FACTOR;P [Concomitant]
     Indication: Neuropathy peripheral
  23. FOLIC ACID [Concomitant]
     Active Substance: FOLIC ACID
     Indication: Folate deficiency
  24. ADEMPAS [Concomitant]
     Active Substance: RIOCIGUAT
     Indication: Pulmonary arterial hypertension
     Dosage: UNKNOWN
  25. FUROSEMIDE [Concomitant]
     Active Substance: FUROSEMIDE
     Indication: Cardiac failure
  26. ICOSAPENT ETHYL [Concomitant]
     Active Substance: ICOSAPENT ETHYL
     Indication: Hyperlipidaemia
  27. CAMOSTAT MESYLATE [Concomitant]
     Active Substance: CAMOSTAT MESYLATE
     Indication: Pancreatitis chronic
  28. DIBEKACIN SULFATE [Concomitant]
     Active Substance: DIBEKACIN SULFATE
     Indication: Conjunctivitis
     Dosage: UNKNOWN WHEN NECESSARY
     Dates: start: 20180717
  29. TIMOLOL [Concomitant]
     Active Substance: TIMOLOL
     Indication: Glaucoma
     Dosage: LEFT EYE
  30. AMLODIPINE [Concomitant]
     Active Substance: AMLODIPINE BESYLATE
     Indication: Hypertension
     Dates: end: 20180423

REACTIONS (16)
  - Cardiac failure [Fatal]
  - Extranodal marginal zone B-cell lymphoma (MALT type) [Not Recovered/Not Resolved]
  - Left ventricular failure [Recovering/Resolving]
  - Atelectasis [Recovered/Resolved]
  - Oesophageal candidiasis [Recovering/Resolving]
  - Varicose vein [Recovering/Resolving]
  - Clostridium difficile colitis [Recovered/Resolved]
  - Dyspnoea [Recovered/Resolved]
  - Haemorrhage [Recovered/Resolved]
  - Haemoglobin decreased [Recovering/Resolving]
  - Dental caries [Recovered/Resolved]
  - Pericoronitis [Recovered/Resolved]
  - Faeces soft [Recovered/Resolved]
  - Hypotension [Recovering/Resolving]
  - Hypotension [Recovering/Resolving]
  - Diarrhoea [Recovered/Resolved]

NARRATIVE: CASE EVENT DATE: 20180101
